FAERS Safety Report 14597409 (Version 1)
Quarter: 2018Q1

REPORT INFORMATION
  Report Type: Spontaneous
  Country: US (occurrence: US)
  Receive Date: 20180305
  Receipt Date: 20180305
  Transmission Date: 20180509
  Serious: No
  Sender: FDA-Public Use
  Company Number: US-AUROBINDO-AUR-APL-2017-30065

PATIENT
  Age: 87 Year
  Sex: Female
  Weight: 53.97 kg

DRUGS (1)
  1. LEVETIRACETAM TABLETS 250 MG [Suspect]
     Active Substance: LEVETIRACETAM
     Indication: EPILEPSY
     Dosage: 250 MG, AT BED TIME
     Route: 048

REACTIONS (2)
  - Insomnia [Not Recovered/Not Resolved]
  - Product substitution issue [Unknown]
